FAERS Safety Report 5508919-5 (Version None)
Quarter: 2007Q4

REPORT INFORMATION
  Report Type: 
  Country: None (occurrence: None)
  Receive Date: 20071031
  Receipt Date: 20070731
  Transmission Date: 20080405
  Serious: No
  Sender: FDA-Public Use
  Company Number: 2007PV033221

PATIENT
  Age: 65 Year
  Sex: Male

DRUGS (2)
  1. SYMLIN [Suspect]
     Dosage: 60 MCG;BID;SC
     Route: 058
     Dates: start: 20070728
  2. INSULIN [Concomitant]

REACTIONS (3)
  - BLOOD GLUCOSE INCREASED [None]
  - DRUG EFFECT DECREASED [None]
  - HEADACHE [None]
